FAERS Safety Report 5928983-9 (Version None)
Quarter: 2008Q4

REPORT INFORMATION
  Report Type: 
  Country: None (occurrence: None)
  Receive Date: 20081024
  Receipt Date: 20081014
  Transmission Date: 20090506
  Serious: Yes (Hospitalization)
  Sender: FDA-Public Use
  Company Number: US-ROCHE-591827

PATIENT
  Sex: Male

DRUGS (2)
  1. PEG-INTERFERON A-2A (RO 25-8310) [Suspect]
     Dosage: FORMULATION: PRE FILLED SYRINGE (PFS)
     Route: 065
     Dates: start: 20071109, end: 20081009
  2. RIBAVIRIN [Suspect]
     Route: 065
     Dates: start: 20071109, end: 20081009

REACTIONS (5)
  - FEAR [None]
  - MENTAL DISORDER [None]
  - PARANOIA [None]
  - RESTLESSNESS [None]
  - SCREAMING [None]
